FAERS Safety Report 15384476 (Version 1)
Quarter: 2018Q3

REPORT INFORMATION
  Report Type: Spontaneous
  Country: US (occurrence: US)
  Receive Date: 20180914
  Receipt Date: 20180914
  Transmission Date: 20181010
  Serious: Yes (Hospitalization, Other)
  Sender: FDA-Public Use
  Company Number: US-ROCHE-2182335

PATIENT
  Sex: Female

DRUGS (1)
  1. OCREVUS [Suspect]
     Active Substance: OCRELIZUMAB
     Indication: PRODUCT USED FOR UNKNOWN INDICATION
     Route: 065
     Dates: start: 20180821

REACTIONS (27)
  - Oropharyngeal pain [Unknown]
  - Peripheral sensory neuropathy [Unknown]
  - Musculoskeletal stiffness [Unknown]
  - Pain in extremity [Unknown]
  - Dysphagia [Unknown]
  - Peripheral swelling [Unknown]
  - Head discomfort [Unknown]
  - Throat irritation [Unknown]
  - Heart rate increased [Unknown]
  - Limb discomfort [Unknown]
  - Abdominal pain [Unknown]
  - Pollakiuria [Unknown]
  - Arthralgia [Unknown]
  - Flushing [Unknown]
  - Nausea [Unknown]
  - Pain of skin [Not Recovered/Not Resolved]
  - Blood pressure increased [Unknown]
  - Neck pain [Unknown]
  - Cholelithiasis [Unknown]
  - Tonsillar hypertrophy [Unknown]
  - Ovarian disorder [Unknown]
  - Headache [Unknown]
  - Back pain [Unknown]
  - Fatigue [Unknown]
  - Neuropathy peripheral [Unknown]
  - Asthenia [Unknown]
  - Dyspnoea [Unknown]

NARRATIVE: CASE EVENT DATE: 20180821
